FAERS Safety Report 8047855-X (Version None)
Quarter: 2012Q1

REPORT INFORMATION
  Report Type: 
  Country: None (occurrence: None)
  Receive Date: 20120116
  Receipt Date: 20120104
  Transmission Date: 20120608
  Serious: Yes (Death)
  Sender: FDA-Public Use
  Company Number: US-COVIDIEN/TYCO HEALTHCARE/MALLINCKRODT-T201200037

PATIENT
  Age: 41 Year
  Sex: Female

DRUGS (5)
  1. ALPRAZOLAM [Suspect]
  2. FENTANYL-100 [Suspect]
  3. OXYCODONE HCL [Suspect]
  4. DIAZEPAM [Suspect]
  5. OXYCODONE/ACETAMINOPHEN [Suspect]

REACTIONS (1)
  - CARDIO-RESPIRATORY ARREST [None]
